FAERS Safety Report 17403391 (Version 3)
Quarter: 2020Q1

REPORT INFORMATION
  Report Type: Spontaneous
  Country: US (occurrence: US)
  Receive Date: 20200211
  Receipt Date: 20200323
  Transmission Date: 20200409
  Serious: Yes (Hospitalization)
  Sender: FDA-Public Use
  Company Number: US-ACTELION-A-NJ2020-201370

PATIENT
  Age: 65 Year
  Sex: Female
  Weight: 52.15 kg

DRUGS (1)
  1. OPSUMIT [Suspect]
     Active Substance: MACITENTAN
     Indication: PULMONARY ARTERIAL HYPERTENSION
     Dosage: 10 MG, QD
     Route: 048
     Dates: start: 20191211

REACTIONS (13)
  - Pleural effusion [Recovering/Resolving]
  - Dyspnoea [Recovering/Resolving]
  - Oedema peripheral [Recovering/Resolving]
  - Diarrhoea [Unknown]
  - Abdominal distension [Recovering/Resolving]
  - Electrolyte imbalance [Unknown]
  - Condition aggravated [Recovering/Resolving]
  - Fluid retention [Unknown]
  - Cardiac disorder [Unknown]
  - Pneumonia [Unknown]
  - Acute kidney injury [Recovering/Resolving]
  - Blood creatinine increased [Recovering/Resolving]
  - Right ventricular failure [Recovering/Resolving]

NARRATIVE: CASE EVENT DATE: 20200217
